FAERS Safety Report 15736713 (Version 1)
Quarter: 2018Q4

REPORT INFORMATION
  Report Type: Spontaneous
  Country: GB (occurrence: GB)
  Receive Date: 20181218
  Receipt Date: 20181218
  Transmission Date: 20190205
  Serious: Yes (Other)
  Sender: FDA-Public Use
  Company Number: PHHY2018GB188771

PATIENT
  Age: 35 Year
  Sex: Male
  Weight: 72.57 kg

DRUGS (3)
  1. PROPRANOLOL [Concomitant]
     Active Substance: PROPRANOLOL HYDROCHLORIDE
     Indication: PRODUCT USED FOR UNKNOWN INDICATION
     Dosage: UNK
     Route: 065
  2. METRONIDAZOLE. [Suspect]
     Active Substance: METRONIDAZOLE
     Indication: TOOTHACHE
     Dosage: 600 MG, QD
     Route: 048
     Dates: start: 20180930
  3. DIAZEPAM. [Concomitant]
     Active Substance: DIAZEPAM
     Indication: PRODUCT USED FOR UNKNOWN INDICATION
     Dosage: UNK
     Route: 065

REACTIONS (8)
  - Nausea [Recovering/Resolving]
  - Anxiety [Not Recovered/Not Resolved]
  - Feeling abnormal [Recovering/Resolving]
  - Tinnitus [Recovered/Resolved with Sequelae]
  - Cardiac flutter [Recovering/Resolving]
  - Tremor [Not Recovered/Not Resolved]
  - Palpitations [Recovering/Resolving]
  - Vomiting [Recovering/Resolving]

NARRATIVE: CASE EVENT DATE: 20180930
